FAERS Safety Report 6794597-4 (Version None)
Quarter: 2010Q2

REPORT INFORMATION
  Report Type: 
  Country: None (occurrence: None)
  Receive Date: 20100625
  Receipt Date: 20100618
  Transmission Date: 20101027
  Serious: Yes (Other)
  Sender: FDA-Public Use
  Company Number: JP-JNJFOC-20100606155

PATIENT
  Age: 80 Year
  Sex: Male

DRUGS (7)
  1. DUROTEP MT PATCH [Suspect]
     Indication: PAIN
     Route: 062
  2. CODEINE PHOSPHATE HEMIHYDRATE [Suspect]
     Indication: ORAL PAIN
     Route: 065
  3. PLETAL [Concomitant]
     Indication: ARTERIAL OCCLUSIVE DISEASE
     Route: 048
  4. PLETAL [Concomitant]
     Indication: ANGINA PECTORIS
     Route: 048
  5. WARFARIN SODIUM [Concomitant]
     Indication: ARTERIAL OCCLUSIVE DISEASE
     Route: 048
  6. WARFARIN SODIUM [Concomitant]
     Indication: ANGINA PECTORIS
     Route: 048
  7. AMOBAN [Concomitant]
     Route: 048

REACTIONS (4)
  - DELUSION [None]
  - INCONTINENCE [None]
  - PORIOMANIA [None]
  - SLEEP DISORDER [None]
